FAERS Safety Report 15901016 (Version 1)
Quarter: 2019Q1

REPORT INFORMATION
  Report Type: Spontaneous
  Country: US (occurrence: US)
  Receive Date: 20190201
  Receipt Date: 20190201
  Transmission Date: 20190417
  Serious: No
  Sender: FDA-Public Use
  Company Number: US-PFIZER INC-2019048206

PATIENT
  Age: 74 Year
  Sex: Female
  Weight: 95.25 kg

DRUGS (12)
  1. PRAVASTATIN. [Concomitant]
     Active Substance: PRAVASTATIN
     Dosage: 20 MG, 1X/DAY (20 MG, ONE TABLET A DAY AT NIGHT)
  2. TRAMADOL. [Concomitant]
     Active Substance: TRAMADOL
     Indication: SPINAL OPERATION
     Dosage: UNK UNK, AS NEEDED
  3. OMEPRAZOLE. [Concomitant]
     Active Substance: OMEPRAZOLE
     Dosage: 20 MG, 1X/DAY (20 MG, ONE CAPSULE IN THE MORNING)
  4. VITAMIN B 2 [Concomitant]
     Dosage: UNK
  5. LYRICA [Suspect]
     Active Substance: PREGABALIN
     Indication: MYELITIS TRANSVERSE
     Dosage: 200 MG, 2X/DAY (MORNING AND IN THE EVENING)
     Route: 048
  6. METOPROLOL. [Concomitant]
     Active Substance: METOPROLOL
     Dosage: 25 MG, 2X/DAY (25 MG, ONE CAPSULE, MORNING AND NIGHT )
  7. DULOXETINE. [Concomitant]
     Active Substance: DULOXETINE
     Dosage: 120 MG, 1X/DAY (TWO CAPSULES IN THE MORNING)
  8. VITAMIIN C [Concomitant]
     Active Substance: ASCORBIC ACID
     Dosage: UNK
  9. VITAMIN B3 [Concomitant]
     Active Substance: NIACIN
     Dosage: UNK
  10. ASPIRIN [ACETYLSALICYLIC ACID] [Concomitant]
     Active Substance: ASPIRIN
     Indication: ANTICOAGULANT THERAPY
     Dosage: 1 DF, 1X/DAY (ONE TABLET AT NIGHT)
  11. GABAPENTIN. [Concomitant]
     Active Substance: GABAPENTIN
     Dosage: 900 MG, 2X/DAY (300 MG, THREE TABLETS MORNING AND NIGHT)
  12. KEFLEX [Concomitant]
     Active Substance: CEPHALEXIN
     Indication: CYSTITIS
     Dosage: 215 MG, 1X/DAY (1 CAPSULE IN THE MORNING)

REACTIONS (4)
  - Product use in unapproved indication [Unknown]
  - Intentional product misuse [Unknown]
  - Aphonia [Unknown]
  - Hypersensitivity [Unknown]
